FAERS Safety Report 5959028-2 (Version None)
Quarter: 2008Q4

REPORT INFORMATION
  Report Type: 
  Country: None (occurrence: None)
  Receive Date: 20081118
  Receipt Date: 20081118
  Transmission Date: 20090506
  Serious: Yes (Life-Threatening)
  Sender: FDA-Public Use
  Company Number: None

PATIENT
  Sex: Female
  Weight: 64 kg

DRUGS (1)
  1. TUBERSOL [Suspect]
     Indication: TUBERCULIN TEST
     Dosage: 5 TU/0.1ML ONCE
     Dates: start: 20080708

REACTIONS (5)
  - HYPOAESTHESIA [None]
  - LIP SWELLING [None]
  - PARAESTHESIA [None]
  - PHARYNGEAL OEDEMA [None]
  - SWELLING FACE [None]
